FAERS Safety Report 5093430-9 (Version None)
Quarter: 2006Q3

REPORT INFORMATION
  Report Type: 
  Country: None (occurrence: None)
  Receive Date: 20060828
  Receipt Date: 20060817
  Transmission Date: 20061208
  Serious: No
  Sender: FDA-Public Use
  Company Number: 2006-01763

PATIENT
  Age: 54 Year
  Sex: Male
  Weight: 107 kg

DRUGS (2)
  1. VELCADE [Suspect]
     Indication: MULTIPLE MYELOMA
     Dosage: MG/M2, INTRAVENOUS
     Route: 042
     Dates: start: 20060612, end: 20060707
  2. CYCLOPHOSPHAMIDE [Suspect]
     Indication: MULTIPLE MYELOMA

REACTIONS (1)
  - CLUSTER HEADACHE [None]
